FAERS Safety Report 8786834 (Version 1)
Quarter: 2012Q4

REPORT INFORMATION
  Report Type: 
  Country: US (occurrence: US)
  Receive Date: 20120914
  Receipt Date: 20120914
  Transmission Date: 20130627
  Serious: No
  Sender: FDA-Public Use
  Company Number: US-BIOGENIDEC-2012BI037080

PATIENT
  Age: 52 Year
  Sex: Female

DRUGS (1)
  1. AVONEX [Suspect]
     Indication: MULTIPLE SCLEROSIS
     Route: 030
     Dates: start: 20120719, end: 201208

REACTIONS (5)
  - Pollakiuria [Recovered/Resolved]
  - Dysuria [Recovered/Resolved]
  - Kidney infection [Recovered/Resolved]
  - Blood urine present [Recovered/Resolved]
  - Cystitis [Recovered/Resolved]
